FAERS Safety Report 14585689 (Version 2)
Quarter: 2018Q2

REPORT INFORMATION
  Report Type: Spontaneous
  Country: US (occurrence: US)
  Receive Date: 20180301
  Receipt Date: 20180422
  Transmission Date: 20180711
  Serious: No
  Sender: FDA-Public Use
  Company Number: US-APOTEX-2017AP016986

PATIENT
  Age: 75 Year
  Sex: Female

DRUGS (2)
  1. CARBIDOPA AND LEVODOPA [Suspect]
     Active Substance: CARBIDOPA\LEVODOPA
     Dosage: 25/100
     Route: 065
  2. CARBIDOPA AND LEVODOPA [Suspect]
     Active Substance: CARBIDOPA\LEVODOPA
     Indication: PARKINSON^S DISEASE
     Dosage: UNK
     Route: 065

REACTIONS (8)
  - Hallucination [Recovering/Resolving]
  - Aphasia [Recovering/Resolving]
  - Asthenia [Recovering/Resolving]
  - Somnolence [Unknown]
  - Gait disturbance [Recovering/Resolving]
  - Dyskinesia [Recovering/Resolving]
  - Drug tolerance [Unknown]
  - Posture abnormal [Recovering/Resolving]
